FAERS Safety Report 8794547 (Version 1)
Quarter: 2012Q4

REPORT INFORMATION
  Report Type: 
  Country: DE (occurrence: DE)
  Receive Date: 20120917
  Receipt Date: 20120917
  Transmission Date: 20130627
  Serious: Yes (Hospitalization, Other)
  Sender: FDA-Public Use
  Company Number: PHHY2012DE079163

PATIENT
  Age: 37 Year
  Sex: Female
  Weight: 50 kg

DRUGS (4)
  1. LEPONEX [Suspect]
     Indication: SCHIZOPHRENIA
     Dosage: 50 mg
     Route: 048
     Dates: start: 20110310, end: 20111204
  2. ZYPREXA [Concomitant]
     Dosage: 10 mg, daily
  3. FEMIBION [Concomitant]
     Indication: PROPHYLAXIS OF NEURAL TUBE DEFECT
     Dosage: 0.4 mg, daily
  4. FOLIC ACID [Concomitant]

REACTIONS (5)
  - Oligohydramnios [Recovered/Resolved]
  - Leukopenia [Recovered/Resolved]
  - Exposure during pregnancy [Unknown]
  - Caesarean section [None]
  - Breech presentation [None]
